FAERS Safety Report 4824082-8 (Version None)
Quarter: 2005Q4

REPORT INFORMATION
  Report Type: 
  Country: None (occurrence: None)
  Receive Date: 20051108
  Receipt Date: 20051024
  Transmission Date: 20060501
  Serious: Yes (Other)
  Sender: FDA-Public Use
  Company Number: HQWYE342409SEP05

PATIENT
  Age: 56 Year
  Sex: Female
  Weight: 102.15 kg

DRUGS (15)
  1. EFFEXOR XR [Suspect]
     Indication: BIPOLAR I DISORDER
     Dosage: SEE IMAGE, ORAL
     Route: 048
     Dates: start: 20050801, end: 20050101
  2. EFFEXOR XR [Suspect]
     Indication: BIPOLAR I DISORDER
     Dosage: SEE IMAGE, ORAL
     Route: 048
     Dates: start: 20050801, end: 20050801
  3. EFFEXOR XR [Suspect]
     Indication: BIPOLAR I DISORDER
     Dosage: SEE IMAGE, ORAL
     Route: 048
     Dates: start: 20050101
  4. AVANDIA [Concomitant]
  5. ACIPHEX [Concomitant]
  6. ESTRACE [Concomitant]
  7. ISORDIL [Concomitant]
  8. ZETIA [Concomitant]
  9. ZOCOR [Concomitant]
  10. K-DUR 10 [Concomitant]
  11. LASIX [Concomitant]
  12. TENORMIN [Concomitant]
  13. NORVASC [Concomitant]
  14. ASPIRIN [Concomitant]
  15. PHENYLTOLOXAMINE (PHENYLTOLOXAMINE) [Concomitant]

REACTIONS (5)
  - DRUG WITHDRAWAL SYNDROME [None]
  - INTENTIONAL SELF-INJURY [None]
  - PAIN IN EXTREMITY [None]
  - SUICIDAL IDEATION [None]
  - TREATMENT NONCOMPLIANCE [None]
